FAERS Safety Report 10248978 (Version 1)
Quarter: 2014Q2

REPORT INFORMATION
  Report Type: Report from Study
  Country: US (occurrence: US)
  Receive Date: 20140620
  Receipt Date: 20140620
  Transmission Date: 20141212
  Serious: Yes (Other)
  Sender: FDA-Public Use
  Company Number: US-ROCHE-1419631

PATIENT
  Sex: Female

DRUGS (2)
  1. LUCENTIS [Suspect]
     Indication: AGE-RELATED MACULAR DEGENERATION
     Route: 065
     Dates: start: 20140613
  2. AVASTIN [Suspect]
     Indication: AGE-RELATED MACULAR DEGENERATION
     Route: 065
     Dates: end: 201307

REACTIONS (5)
  - Presumed ocular histoplasmosis syndrome [Unknown]
  - Eye irritation [Unknown]
  - Retinal detachment [Unknown]
  - Retinal operation [Unknown]
  - Lacrimation increased [Unknown]
